FAERS Safety Report 5399003-2 (Version None)
Quarter: 2007Q3

REPORT INFORMATION
  Report Type: 
  Country: None (occurrence: None)
  Receive Date: 20070727
  Receipt Date: 20070724
  Transmission Date: 20080115
  Serious: Yes (Life-Threatening)
  Sender: FDA-Public Use
  Company Number: DE-BRISTOL-MYERS SQUIBB COMPANY-13856455

PATIENT
  Age: 32 Year
  Sex: Female
  Weight: 74 kg

DRUGS (2)
  1. ORENCIA [Suspect]
     Route: 042
     Dates: start: 20070724, end: 20070724
  2. SOLU-DECORTIN-H [Suspect]
     Route: 042
     Dates: start: 20070724, end: 20070724

REACTIONS (5)
  - COLD SWEAT [None]
  - DYSKINESIA [None]
  - LOSS OF CONSCIOUSNESS [None]
  - MALAISE [None]
  - VISUAL DISTURBANCE [None]
